FAERS Safety Report 4350869-4 (Version None)
Quarter: 2004Q2

REPORT INFORMATION
  Report Type: 
  Country: None (occurrence: None)
  Receive Date: 20040427
  Receipt Date: 20040415
  Transmission Date: 20050107
  Serious: Yes (Death)
  Sender: FDA-Public Use
  Company Number: 2004021296

PATIENT
  Sex: Male
  Weight: 52.1637 kg

DRUGS (1)
  1. VIAGRA [Suspect]
     Indication: ILL-DEFINED DISORDER
     Dosage: ONCE, ORAL
     Route: 048
     Dates: start: 20020101, end: 20020101

REACTIONS (3)
  - GASTRIC CANCER [None]
  - MUSCULOSKELETAL STIFFNESS [None]
  - NECK PAIN [None]
